FAERS Safety Report 4587183-8 (Version None)
Quarter: 2005Q1

REPORT INFORMATION
  Report Type: 
  Country: None (occurrence: None)
  Receive Date: 20050218
  Receipt Date: 20050117
  Transmission Date: 20050727
  Serious: Yes (Death, Life-Threatening)
  Sender: FDA-Public Use
  Company Number: TR-NOVOPROD-241858

PATIENT
  Age: 13 Year
  Sex: Female
  Weight: 40 kg

DRUGS (2)
  1. NOVOSEVEN [Suspect]
     Indication: CARDIAC OPERATION
     Dosage: 180 UG/KG X 2
     Route: 042
     Dates: start: 20041209, end: 20041209
  2. PROPRANOLOL [Concomitant]

REACTIONS (4)
  - HAEMODYNAMIC INSTABILITY [None]
  - HAEMORRHAGE [None]
  - POST PROCEDURAL COMPLICATION [None]
  - SHUNT OCCLUSION [None]
